FAERS Safety Report 6199899-0 (Version None)
Quarter: 2009Q2

REPORT INFORMATION
  Report Type: 
  Country: None (occurrence: None)
  Receive Date: 20090522
  Receipt Date: 20090424
  Transmission Date: 20091009
  Serious: Yes (Hospitalization)
  Sender: FDA-Public Use
  Company Number: NO-PFIZER INC-2009203675

PATIENT
  Age: 68 Year

DRUGS (4)
  1. SALAZOPYRIN [Suspect]
     Indication: ARTHRITIS REACTIVE
     Dosage: 1 G, 2X/DAY
     Route: 048
     Dates: start: 20090119, end: 20090306
  2. PREDNISOLONE [Concomitant]
     Indication: ARTHRITIS REACTIVE
     Dosage: 15 MG, 1X/DAY, DOSE TO BE REDUCED ACCORDING TO SCHEDULE
     Route: 048
     Dates: start: 20081231
  3. NEXIUM [Concomitant]
     Indication: OESOPHAGITIS
     Dosage: 20 MG, 2X/DAY
     Route: 048
     Dates: start: 19980101
  4. ALBYL-E [Concomitant]
     Indication: TRANSIENT ISCHAEMIC ATTACK
     Dosage: 160 MG, 1X/DAY
     Route: 048

REACTIONS (3)
  - FEBRILE NEUTROPENIA [None]
  - GRANULOCYTOPENIA [None]
  - LEUKOPENIA [None]
